FAERS Safety Report 9332076 (Version 9)
Quarter: 2014Q1

REPORT INFORMATION
  Report Type: Report from Study
  Country: PL (occurrence: PL)
  Receive Date: 20130605
  Receipt Date: 20140220
  Transmission Date: 20141002
  Serious: Yes (Hospitalization, Other)
  Sender: FDA-Public Use
  Company Number: PL-PFIZER INC-2013162714

PATIENT
  Age: 64 Year
  Sex: Male
  Weight: 86 kg

DRUGS (8)
  1. TOFACITINIB CITRATE [Suspect]
     Indication: RHEUMATOID ARTHRITIS
     Dosage: 10 MG, 2X/DAY
     Route: 048
     Dates: start: 20100907, end: 20110415
  2. TOFACITINIB CITRATE [Suspect]
     Dosage: 5 MG, 2X/DAY
     Route: 048
     Dates: start: 20110609, end: 20110617
  3. TOFACITINIB CITRATE [Suspect]
     Dosage: 10 MG, 2X/DAY
     Route: 048
     Dates: start: 20110618, end: 20130415
  4. HEPAREGEN [Concomitant]
     Indication: HEPATIC STEATOSIS
     Dosage: UNK
     Dates: start: 20120917
  5. NOLPAZA [Concomitant]
     Indication: PROPHYLAXIS
     Dosage: UNK
     Dates: start: 20080229
  6. INSUMAN COMB 25 [Concomitant]
     Indication: TYPE 2 DIABETES MELLITUS
     Dosage: UNK
     Dates: start: 20120915
  7. CONCOR COR [Concomitant]
     Indication: HYPERTENSION
     Dosage: UNK
     Dates: start: 20130416
  8. ACARD [Concomitant]
     Indication: ARTERIOSCLEROSIS
     Dosage: UNK
     Dates: start: 20130416

REACTIONS (1)
  - B-cell small lymphocytic lymphoma [Not Recovered/Not Resolved]
